FAERS Safety Report 5452641-0 (Version None)
Quarter: 2007Q3

REPORT INFORMATION
  Report Type: 
  Country: None (occurrence: None)
  Receive Date: 20070914
  Receipt Date: 20070910
  Transmission Date: 20080115
  Serious: Yes (Hospitalization, Other)
  Sender: FDA-Public Use
  Company Number: ES-BRISTOL-MYERS SQUIBB COMPANY-13893987

PATIENT
  Age: 69 Year
  Sex: Male

DRUGS (5)
  1. METFORMIN HCL [Suspect]
     Indication: TYPE 2 DIABETES MELLITUS
  2. INDAPAMIDE [Concomitant]
     Indication: HYPERTENSION
  3. CAPTOPRIL [Concomitant]
     Indication: HYPERTENSION
  4. INSULIN [Concomitant]
     Indication: TYPE 2 DIABETES MELLITUS
  5. ATORVASTATIN CALCIUM [Concomitant]
     Indication: DYSLIPIDAEMIA

REACTIONS (10)
  - ABDOMINAL PAIN [None]
  - DIARRHOEA [None]
  - GENERAL PHYSICAL HEALTH DETERIORATION [None]
  - GOUT [None]
  - HEPATIC STEATOSIS [None]
  - LACTIC ACIDOSIS [None]
  - OLIGURIA [None]
  - ORAL INTAKE REDUCED [None]
  - PROTEINURIA [None]
  - VOMITING [None]
